FAERS Safety Report 23935492 (Version 1)
Quarter: 2024Q2

REPORT INFORMATION
  Report Type: Spontaneous
  Country: US (occurrence: US)
  Receive Date: 20240604
  Receipt Date: 20240604
  Transmission Date: 20240715
  Serious: Yes (Hospitalization)
  Sender: FDA-Public Use
  Company Number: US-UPSHER-SMITH LABORATORIES, LLC-2024USL00417

PATIENT
  Age: 46 Year

DRUGS (1)
  1. TESTOSTERONE [Suspect]
     Active Substance: TESTOSTERONE
     Indication: Transgender hormonal therapy
     Dosage: UNK
     Dates: start: 2015, end: 2022

REACTIONS (3)
  - Unmasking of previously unidentified disease [Recovered/Resolved]
  - Hepatic failure [Recovering/Resolving]
  - Varices oesophageal [Unknown]

NARRATIVE: CASE EVENT DATE: 20220101
